FAERS Safety Report 16478510 (Version 3)
Quarter: 2019Q3

REPORT INFORMATION
  Report Type: Spontaneous
  Country: US (occurrence: US)
  Receive Date: 20190626
  Receipt Date: 20190807
  Transmission Date: 20191004
  Serious: Yes (Death)
  Sender: FDA-Public Use
  Company Number: US-PFIZER INC-2019271758

PATIENT
  Age: 50 Year
  Sex: Female

DRUGS (3)
  1. INLYTA [Suspect]
     Active Substance: AXITINIB
     Indication: RENAL CANCER
     Dosage: 5 MG, 2X/DAY (EVERY 12 HOURS)
     Route: 048
     Dates: start: 201904
  2. INLYTA [Suspect]
     Active Substance: AXITINIB
     Dosage: 7 MG, 2X/DAY (EVERY 12 HOURS)
     Route: 048
  3. INLYTA [Suspect]
     Active Substance: AXITINIB
     Dosage: 7 MG, 2X/DAY (EVERY 12 HOURS)
     Route: 048

REACTIONS (5)
  - Hair colour changes [Unknown]
  - Death [Fatal]
  - Nausea [Unknown]
  - Rash macular [Unknown]
  - Stomatitis [Unknown]

NARRATIVE: CASE EVENT DATE: 20190721
